FAERS Safety Report 5770830-2 (Version None)
Quarter: 2008Q2

REPORT INFORMATION
  Report Type: 
  Country: None (occurrence: None)
  Receive Date: 20080613
  Receipt Date: 20080515
  Transmission Date: 20081010
  Serious: No
  Sender: FDA-Public Use
  Company Number: US-ABBOTT-08P-163-0451988-00

PATIENT
  Sex: Female
  Weight: 57.658 kg

DRUGS (4)
  1. HUMIRA [Suspect]
     Indication: PSORIATIC ARTHROPATHY
     Route: 058
     Dates: start: 20080514
  2. MILK THISTLE [Concomitant]
     Indication: LIVER DISORDER
     Route: 048
     Dates: start: 20051201
  3. OXYCODONE HCL EXTENDED-RELEASE [Concomitant]
     Indication: PAIN
     Route: 048
     Dates: start: 20051201
  4. MODAFINIL [Concomitant]
     Indication: CENTRAL NERVOUS SYSTEM STIMULATION
     Route: 048
     Dates: start: 20060101

REACTIONS (1)
  - ACCIDENTAL EXPOSURE [None]
